FAERS Safety Report 6593241-9 (Version None)
Quarter: 2010Q1

REPORT INFORMATION
  Report Type: 
  Country: None (occurrence: None)
  Receive Date: 20100212
  Receipt Date: 20100129
  Transmission Date: 20100710
  Serious: No
  Sender: FDA-Public Use
  Company Number: 008712

PATIENT
  Age: 81 Year
  Sex: Female

DRUGS (10)
  1. PLETAL [Suspect]
     Dosage: 100 MG, BID ORAL
     Route: 048
     Dates: start: 20100113, end: 20100127
  2. PREDNISOLONE [Concomitant]
  3. FAMOTIDINE [Concomitant]
  4. INFREE (NDOMETACIN) CAPSULE [Concomitant]
  5. VONTROL [Concomitant]
  6. MARZULENE S (LEVOGLUTAMIDE, SODIUM GUALENATE) GRANULE [Concomitant]
  7. MAGNESIUM OXIDE (MAGNESIUM OXIDE) [Concomitant]
  8. ALPRAZOLAM [Concomitant]
  9. YODEL-S (SENNA) TABLET [Concomitant]
  10. NAUZELIN (DOMPERIDONE) [Concomitant]

REACTIONS (1)
  - RENAL IMPAIRMENT [None]
